FAERS Safety Report 6748430-7 (Version None)
Quarter: 2010Q2

REPORT INFORMATION
  Report Type: 
  Country: None (occurrence: None)
  Receive Date: 20100601
  Receipt Date: 20100601
  Transmission Date: 20101027
  Serious: Yes (Other)
  Sender: FDA-Public Use
  Company Number: None

PATIENT
  Sex: Female
  Weight: 9.0719 kg

DRUGS (1)
  1. CHILDREN'S MOTRIN [Suspect]
     Indication: PYREXIA
     Dosage: 1.25 ML 3 OR 4 X IN 48 HRS PO
     Route: 048
     Dates: start: 20100526, end: 20100528

REACTIONS (6)
  - DRUG TOXICITY [None]
  - FEBRILE CONVULSION [None]
  - OVERDOSE [None]
  - POOR QUALITY DRUG ADMINISTERED [None]
  - PRODUCT CONTAMINATION [None]
  - PRODUCT QUALITY ISSUE [None]
